FAERS Safety Report 15694872 (Version 1)
Quarter: 2018Q4

REPORT INFORMATION
  Report Type: Spontaneous
  Country: US (occurrence: US)
  Receive Date: 20181206
  Receipt Date: 20181206
  Transmission Date: 20190205
  Serious: No
  Sender: FDA-Public Use
  Company Number: US-BAYER-2018-221285

PATIENT
  Age: 78 Year
  Sex: Female
  Weight: 73 kg

DRUGS (3)
  1. DULCOLAX (BISACODYL) [Concomitant]
     Active Substance: BISACODYL
  2. MIRALAX [Suspect]
     Active Substance: POLYETHYLENE GLYCOL 3350
     Indication: GASTROINTESTINAL DISORDER
     Dosage: 1 DOSE 3 DAYS PER WEEK
     Route: 048
     Dates: start: 201811, end: 20181126
  3. MILK OF MAGNESIA [Suspect]
     Active Substance: MAGNESIUM HYDROXIDE

REACTIONS (5)
  - Discomfort [Unknown]
  - Abdominal pain [None]
  - Constipation [Unknown]
  - Drug ineffective [Unknown]
  - Abdominal distension [Unknown]

NARRATIVE: CASE EVENT DATE: 201811
